FAERS Safety Report 9494225 (Version 1)
Quarter: 2013Q3

REPORT INFORMATION
  Report Type: Spontaneous
  Country: FR (occurrence: FR)
  Receive Date: 20130903
  Receipt Date: 20130903
  Transmission Date: 20140515
  Serious: Yes (Hospitalization)
  Sender: FDA-Public Use
  Company Number: FR-JNJFOC-20130816922

PATIENT
  Age: 77 Year
  Sex: Male

DRUGS (10)
  1. XARELTO [Suspect]
     Indication: CEREBROVASCULAR ACCIDENT PROPHYLAXIS
     Route: 048
     Dates: start: 20130514, end: 20130530
  2. XARELTO [Suspect]
     Indication: ATRIAL FIBRILLATION
     Route: 048
     Dates: start: 20130514, end: 20130530
  3. LOVENOX [Concomitant]
     Route: 065
     Dates: end: 201305
  4. SIMVASTATINE [Concomitant]
     Route: 065
  5. HEMIGOXINE NATIVELLE [Concomitant]
     Route: 065
  6. INEXIUM [Concomitant]
     Route: 065
  7. SEROPLEX [Concomitant]
     Route: 065
  8. BISOPROLOL [Concomitant]
     Route: 065
  9. KARDEGIC [Concomitant]
     Route: 065
     Dates: end: 201305
  10. DAFALGAN CODEINE [Concomitant]
     Route: 065

REACTIONS (2)
  - Deep vein thrombosis [Recovered/Resolved]
  - Drug ineffective [Recovered/Resolved]
